FAERS Safety Report 4360035-4 (Version None)
Quarter: 2004Q2

REPORT INFORMATION
  Report Type: 
  Country: None (occurrence: None)
  Receive Date: 20040513
  Receipt Date: 20040503
  Transmission Date: 20050107
  Serious: Yes (Hospitalization, Other)
  Sender: FDA-Public Use
  Company Number: 2004029925

PATIENT
  Sex: Female
  Weight: 49.8957 kg

DRUGS (5)
  1. NEURONTIN [Suspect]
     Indication: MOOD SWINGS
     Dosage: 1400 MG (EVERY DAY), ORAL
     Route: 048
  2. GABAPENTIN [Suspect]
     Indication: MOOD SWINGS
     Dates: end: 20040502
  3. CARISOPRODOL [Suspect]
     Indication: ILL-DEFINED DISORDER
  4. SERTRALINE HCL [Concomitant]
  5. OBETROL AMFETAMINE ASPARTATE, AMFETAMINE SULFATE, DEXAMFETAMINE SACCHA [Concomitant]

REACTIONS (14)
  - ABNORMAL BEHAVIOUR [None]
  - AGGRESSION [None]
  - ANXIETY [None]
  - CONVULSION [None]
  - DEPERSONALISATION [None]
  - DISSOCIATION [None]
  - HEAD BANGING [None]
  - HEAD INJURY [None]
  - LOSS OF CONSCIOUSNESS [None]
  - MEDICATION ERROR [None]
  - OVERDOSE [None]
  - PERSONALITY CHANGE [None]
  - PSYCHOMOTOR HYPERACTIVITY [None]
  - SEXUAL ASSAULT VICTIM [None]
